FAERS Safety Report 20409285 (Version 1)
Quarter: 2022Q1

REPORT INFORMATION
  Report Type: Spontaneous
  Country: US (occurrence: None)
  Receive Date: 20220131
  Receipt Date: 20220131
  Transmission Date: 20220424
  Serious: Yes (Hospitalization)
  Sender: FDA-Public Use
  Company Number: None

PATIENT
  Sex: Female

DRUGS (1)
  1. XIFAXAN [Suspect]
     Active Substance: RIFAXIMIN
     Indication: Hepatic failure
     Dosage: FREQUENCY : TWICE A DAY;?
     Route: 048
     Dates: start: 202103

REACTIONS (3)
  - Coronavirus infection [None]
  - Liver disorder [None]
  - Haemorrhage [None]
